FAERS Safety Report 4817522-1 (Version None)
Quarter: 2005Q4

REPORT INFORMATION
  Report Type: 
  Country: None (occurrence: None)
  Receive Date: 20051101
  Receipt Date: 20051026
  Transmission Date: 20060501
  Serious: Yes (Death)
  Sender: FDA-Public Use
  Company Number: TN-MERCK-0510USA09408

PATIENT
  Age: 42 Year
  Sex: Male

DRUGS (2)
  1. HYZAAR [Suspect]
     Route: 065
     Dates: start: 20030301
  2. FLECAINIDE ACETATE [Concomitant]
     Indication: EXTRASYSTOLES
     Route: 065
     Dates: start: 20030301

REACTIONS (1)
  - HEPATOTOXICITY [None]
